FAERS Safety Report 10388868 (Version 1)
Quarter: 2014Q1

REPORT INFORMATION
  Report Type: Spontaneous
  Country: US (occurrence: None)
  Receive Date: 20140306
  Receipt Date: 20140306
  Transmission Date: 20141002
  Serious: Yes (Other)
  Sender: FDA-Public Use
  Company Number: 163-21880-13071344

PATIENT
  Age: 64 Year
  Sex: Male
  Weight: 102 kg

DRUGS (12)
  1. REVLIMID (LENALIDOMIDE) (25 MILLIGRAM, CAPSULES) [Suspect]
     Indication: PLASMA CELL MYELOMA
     Dosage: 25 MG , 1 IN 1 D, PO
     Route: 048
     Dates: start: 20061205
  2. ALLOPURINAL [Concomitant]
  3. VITAMIN B12 (CYANOCOBALAMIN) [Concomitant]
  4. VITAMIN D (ERGOCALCIFEROL) [Concomitant]
  5. CYMBALTA (DULOXETINE HYDROCHLORIDE) [Concomitant]
  6. LIPITOR (ATORVASTATIN) [Concomitant]
  7. POTASSIUM CITRATE [Concomitant]
  8. METOPROLOL SUCCINATE [Concomitant]
  9. MULTIVITAMINS [Concomitant]
  10. ASPIRIN (ACETYLSALICYLIC ACID) (ENTERIC-COATED TABLET) [Concomitant]
  11. PROAIR HFA (SALBUTAMOL SULFATE) [Concomitant]
  12. QUINAPRIL [Concomitant]

REACTIONS (1)
  - Deep vein thrombosis [None]
